FAERS Safety Report 21195499 (Version 2)
Quarter: 2022Q3

REPORT INFORMATION
  Report Type: Spontaneous
  Country: JP (occurrence: JP)
  Receive Date: 20220810
  Receipt Date: 20220906
  Transmission Date: 20221026
  Serious: Yes (Death, Hospitalization, Other)
  Sender: FDA-Public Use
  Company Number: JP-MSD-M2022-32648

PATIENT
  Age: 82 Year
  Sex: Male

DRUGS (3)
  1. TEMODAL [Suspect]
     Active Substance: TEMOZOLOMIDE
     Indication: Malignant glioma
     Dosage: 100 MILLIGRAM
     Route: 048
     Dates: start: 20220502, end: 2022
  2. TEMODAL [Suspect]
     Active Substance: TEMOZOLOMIDE
     Dosage: 200 MILLIGRAM
     Route: 048
     Dates: start: 20220711, end: 20220715
  3. TEMODAL [Suspect]
     Active Substance: TEMOZOLOMIDE
     Indication: Malignant glioma
     Dosage: 20 MILLIGRAM
     Route: 048
     Dates: start: 20220502, end: 20220715

REACTIONS (3)
  - Pneumonitis [Not Recovered/Not Resolved]
  - Malignant neoplasm progression [Fatal]
  - Pneumonia aspiration [Not Recovered/Not Resolved]

NARRATIVE: CASE EVENT DATE: 20220801
